FAERS Safety Report 26127910 (Version 1)
Quarter: 2025Q4

REPORT INFORMATION
  Report Type: Spontaneous
  Country: US (occurrence: US)
  Receive Date: 20251206
  Receipt Date: 20251206
  Transmission Date: 20260117
  Serious: Yes (Hospitalization, Other)
  Sender: GALPHARM INTERNATIONAL
  Company Number: US-PERRIGO-25US013689

PATIENT
  Age: 75 Year
  Sex: Male
  Weight: 105.22 kg

DRUGS (1)
  1. DICLOFENAC SODIUM [Suspect]
     Active Substance: DICLOFENAC SODIUM
     Indication: Arthralgia
     Dosage: LIGHT FILM TO MULTIPLE AREAS, ONCE
     Route: 061
     Dates: start: 20251012, end: 20251012

REACTIONS (6)
  - Burns second degree [Not Recovered/Not Resolved]
  - Pain [Not Recovered/Not Resolved]
  - Application site pain [Recovered/Resolved]
  - Intentional product use issue [Recovered/Resolved]
  - Incorrect dose administered [Recovered/Resolved]
  - Wrong technique in product usage process [Recovered/Resolved]

NARRATIVE: CASE EVENT DATE: 20251012
